FAERS Safety Report 12070015 (Version 1)
Quarter: 2016Q1

REPORT INFORMATION
  Report Type: Spontaneous
  Country: US (occurrence: US)
  Receive Date: 20160211
  Receipt Date: 20160211
  Transmission Date: 20160526
  Serious: Yes (Death)
  Sender: FDA-Public Use
  Company Number: US-FRI-1000082461

PATIENT
  Age: 33 Year
  Sex: Female
  Weight: 67.72 kg

DRUGS (10)
  1. VIIBRYD [Suspect]
     Active Substance: VILAZODONE HYDROCHLORIDE
     Indication: POST-TRAUMATIC STRESS DISORDER
     Route: 048
     Dates: start: 201601
  2. TRAZODONE [Concomitant]
     Active Substance: TRAZODONE HYDROCHLORIDE
     Dates: end: 2016
  3. VIIBRYD [Suspect]
     Active Substance: VILAZODONE HYDROCHLORIDE
     Dosage: 40 MG
     Route: 048
     Dates: end: 201601
  4. RISPERDAL [Concomitant]
     Active Substance: RISPERIDONE
     Dates: end: 2016
  5. VISTARIL [Concomitant]
     Active Substance: HYDROXYZINE PAMOATE
     Dates: end: 2016
  6. NEURONTIN [Concomitant]
     Active Substance: GABAPENTIN
     Dates: end: 2016
  7. VIIBRYD [Suspect]
     Active Substance: VILAZODONE HYDROCHLORIDE
     Indication: MAJOR DEPRESSION
     Route: 048
     Dates: start: 20160111, end: 201601
  8. ANTABUSE [Concomitant]
     Active Substance: DISULFIRAM
     Dates: end: 2016
  9. RISPERDAL CONSTA [Concomitant]
     Active Substance: RISPERIDONE
     Dates: end: 2016
  10. XANAX [Concomitant]
     Active Substance: ALPRAZOLAM
     Dates: end: 2016

REACTIONS (1)
  - Death [Fatal]

NARRATIVE: CASE EVENT DATE: 20160127
